FAERS Safety Report 7774921-6 (Version None)
Quarter: 2011Q3

REPORT INFORMATION
  Report Type: 
  Country: None (occurrence: None)
  Receive Date: 20110923
  Receipt Date: 20110914
  Transmission Date: 20111222
  Serious: Yes (Hospitalization)
  Sender: FDA-Public Use
  Company Number: JP-B.I. PHARMACEUTICALS,INC./RIDGEFIELD-2011-BP-20179NB

PATIENT
  Sex: Male
  Weight: 70.3 kg

DRUGS (5)
  1. PRADAXA [Suspect]
     Indication: ATRIAL FIBRILLATION
     Dosage: 220 MG
     Route: 048
     Dates: start: 20110419, end: 20110808
  2. AMLODIPINE [Concomitant]
     Indication: HYPERTENSION
     Dosage: 5 MG
     Route: 048
     Dates: start: 20100331
  3. NIZATIDINE [Concomitant]
     Indication: HYPERTENSION
     Dosage: 75 MG
     Route: 048
     Dates: start: 20100311
  4. AVAPRO [Concomitant]
     Indication: HYPERTENSION
     Dosage: 100 MG
     Route: 048
     Dates: start: 20100311
  5. TRICHLORMETHIAZIDE [Concomitant]
     Indication: HYPERTENSION
     Dosage: 0.5 MG
     Route: 048
     Dates: start: 20100317

REACTIONS (7)
  - PLEURAL EFFUSION [None]
  - FAECAL INCONTINENCE [None]
  - HAEMORRHAGE SUBCUTANEOUS [None]
  - CHOLELITHIASIS [None]
  - HEPATIC FUNCTION ABNORMAL [None]
  - MELAENA [None]
  - SPLENOMEGALY [None]
